FAERS Safety Report 20736460 (Version 1)
Quarter: 2022Q2

REPORT INFORMATION
  Report Type: Other
  Country: DE (occurrence: None)
  Receive Date: 20220421
  Receipt Date: 20220421
  Transmission Date: 20220721
  Serious: Yes (Other)
  Sender: FDA-Public Use
  Company Number: DE-ROCHE-3074166

PATIENT
  Age: 42 Year
  Sex: Female

DRUGS (14)
  1. OCRELIZUMAB [Suspect]
     Active Substance: OCRELIZUMAB
     Indication: Relapsing multiple sclerosis
     Route: 042
     Dates: start: 20190115
  2. OCRELIZUMAB [Suspect]
     Active Substance: OCRELIZUMAB
     Route: 042
     Dates: start: 20180519, end: 20180703
  3. METHYLPREDNISOLONE [Concomitant]
     Active Substance: METHYLPREDNISOLONE
     Indication: Prophylaxis
     Route: 042
     Dates: start: 20180703, end: 20180703
  4. METHYLPREDNISOLONE [Concomitant]
     Active Substance: METHYLPREDNISOLONE
     Route: 042
     Dates: start: 20190115, end: 20190115
  5. METHYLPREDNISOLONE [Concomitant]
     Active Substance: METHYLPREDNISOLONE
     Route: 042
     Dates: start: 20180519, end: 20180519
  6. COMIRNATY [Concomitant]
     Active Substance: TOZINAMERAN
     Indication: COVID-19 immunisation
     Route: 030
     Dates: start: 20210721, end: 20210721
  7. COMIRNATY [Concomitant]
     Active Substance: TOZINAMERAN
     Route: 030
     Dates: start: 20210608, end: 20210608
  8. DIMETHINDENE [Concomitant]
     Active Substance: DIMETHINDENE
     Indication: Prophylaxis
     Route: 042
     Dates: start: 20180703, end: 20180703
  9. DIMETHINDENE [Concomitant]
     Active Substance: DIMETHINDENE
     Route: 042
     Dates: start: 20190115, end: 20190115
  10. DIMETHINDENE [Concomitant]
     Active Substance: DIMETHINDENE
     Route: 042
     Dates: start: 20190806, end: 20190806
  11. DIMETHINDENE [Concomitant]
     Active Substance: DIMETHINDENE
     Route: 042
     Dates: start: 20180519, end: 20180519
  12. METHYLPREDNISOLONE [Concomitant]
     Active Substance: METHYLPREDNISOLONE
     Indication: Prophylaxis
     Route: 042
     Dates: start: 20190806, end: 20190806
  13. IBUPROFEN [Concomitant]
     Active Substance: IBUPROFEN
     Indication: Back pain
     Route: 048
     Dates: start: 20181202, end: 20190108
  14. AMOXICILLIN [Concomitant]
     Active Substance: AMOXICILLIN
     Indication: Angina pectoris
     Route: 048
     Dates: start: 20181129, end: 20181208

REACTIONS (2)
  - Arrhythmia [Not Recovered/Not Resolved]
  - Abdominal pain upper [Recovered/Resolved]

NARRATIVE: CASE EVENT DATE: 20220121
